FAERS Safety Report 4950111-7 (Version None)
Quarter: 2006Q1

REPORT INFORMATION
  Report Type: 
  Country: None (occurrence: None)
  Receive Date: 20060320
  Receipt Date: 20060320
  Transmission Date: 20060701
  Serious: Yes (Other)
  Sender: FDA-Public Use
  Company Number: None

PATIENT
  Sex: Female
  Weight: 107.0489 kg

DRUGS (2)
  1. LEXAPRO [Suspect]
     Indication: ANXIETY
     Dosage: 20 MG   DAILY, HS   PO   (INTERMITTENT)
     Route: 048
     Dates: start: 20040303, end: 20060316
  2. LEXAPRO [Suspect]
     Indication: DEPRESSION
     Dosage: 20 MG   DAILY, HS   PO   (INTERMITTENT)
     Route: 048
     Dates: start: 20040303, end: 20060316

REACTIONS (2)
  - ATRIAL FIBRILLATION [None]
  - FATIGUE [None]
